FAERS Safety Report 9291258 (Version 3)
Quarter: 2014Q2

REPORT INFORMATION
  Report Type: Report from Study
  Country: BR (occurrence: BR)
  Receive Date: 20130515
  Receipt Date: 20140527
  Transmission Date: 20141212
  Serious: Yes (Death, Hospitalization)
  Sender: FDA-Public Use
  Company Number: BR-ACTELION-A-CH2013-83218

PATIENT
  Age: 59 Year
  Sex: Female

DRUGS (5)
  1. TRACLEER [Suspect]
     Indication: PULMONARY ARTERIAL HYPERTENSION
     Dosage: 125 MG, BID
     Route: 048
     Dates: start: 20110806
  2. TRACLEER [Suspect]
     Dosage: 62.5 MG, BID
     Route: 048
     Dates: start: 20110706, end: 20110805
  3. AMLODIPINE [Concomitant]
     Dosage: 10 MG, QD
  4. FUROSEMIDE [Concomitant]
     Dosage: 80 MG, QD
  5. SILDENAFIL [Concomitant]
     Dosage: 20 MG, TID
     Route: 048
     Dates: start: 20130202

REACTIONS (4)
  - Right ventricular failure [Fatal]
  - Fatigue [Recovering/Resolving]
  - Condition aggravated [Unknown]
  - Respiratory tract infection [Unknown]
